FAERS Safety Report 7777278-X (Version None)
Quarter: 2011Q3

REPORT INFORMATION
  Report Type: 
  Country: None (occurrence: None)
  Receive Date: 20110926
  Receipt Date: 20110919
  Transmission Date: 20111222
  Serious: Yes (Other)
  Sender: FDA-Public Use
  Company Number: PHHY2011KR83191

PATIENT
  Sex: Female

DRUGS (3)
  1. CALCIUM CHANNEL BLOCKERS [Concomitant]
  2. EXELON [Suspect]
     Dosage: 4.50 MG
  3. ASPIRIN [Concomitant]

REACTIONS (3)
  - ELECTROCARDIOGRAM QT PROLONGED [None]
  - PALPITATIONS [None]
  - HYPOTENSION [None]
